FAERS Safety Report 17960638 (Version 1)
Quarter: 2020Q2

REPORT INFORMATION
  Report Type: Spontaneous
  Country: US (occurrence: US)
  Receive Date: 20200629
  Receipt Date: 20200629
  Transmission Date: 20200714
  Serious: No
  Sender: FDA-Public Use
  Company Number: US-ROCHE-2388615

PATIENT
  Age: 59 Year
  Sex: Female

DRUGS (5)
  1. PANTOPRAZOLE [Concomitant]
     Active Substance: PANTOPRAZOLE
  2. XELODA [Suspect]
     Active Substance: CAPECITABINE
     Indication: GASTRIC CANCER
     Dosage: 3 TABLETS
     Route: 048
     Dates: start: 20190604
  3. ONDANSETRON [Concomitant]
     Active Substance: ONDANSETRON
  4. OXYCODONE [Concomitant]
     Active Substance: OXYCODONE
  5. MEGESTROL [Concomitant]
     Active Substance: MEGESTROL

REACTIONS (4)
  - Off label use [Unknown]
  - Skin discolouration [Unknown]
  - Product use in unapproved indication [Unknown]
  - Rash [Unknown]

NARRATIVE: CASE EVENT DATE: 20190820
